FAERS Safety Report 20144894 (Version 1)
Quarter: 2021Q4

REPORT INFORMATION
  Report Type: Spontaneous
  Country: None (occurrence: US)
  Receive Date: 20211203
  Receipt Date: 20211203
  Transmission Date: 20220303
  Serious: Yes (Hospitalization, Other)
  Sender: FDA-Public Use
  Company Number: US-Prestige Brands -2122640

PATIENT
  Sex: Male

DRUGS (2)
  1. GOODYS EXTRA STRENGTH [Suspect]
     Active Substance: ACETAMINOPHEN\ASPIRIN\CAFFEINE
     Indication: Headache
     Route: 048
  2. DILAUDID [Concomitant]
     Active Substance: HYDROMORPHONE HYDROCHLORIDE

REACTIONS (4)
  - Gastrooesophageal reflux disease [Recovered/Resolved]
  - Oesophageal ulcer [Recovered/Resolved]
  - Intestinal perforation [Recovered/Resolved]
  - Incorrect product administration duration [None]
